FAERS Safety Report 11168087 (Version 1)
Quarter: 2015Q2

REPORT INFORMATION
  Report Type: Spontaneous
  Country: US (occurrence: None)
  Receive Date: 20150604
  Receipt Date: 20150604
  Transmission Date: 20150821
  Serious: Yes (Disabling)
  Sender: FDA-Public Use
  Company Number: None

PATIENT
  Age: 39 Year
  Sex: Female
  Weight: 58.97 kg

DRUGS (17)
  1. LOSARTAN [Concomitant]
     Active Substance: LOSARTAN
  2. NAPROSEN [Concomitant]
  3. SYNTHROID [Concomitant]
     Active Substance: LEVOTHYROXINE SODIUM
  4. SEROQUEL [Concomitant]
     Active Substance: QUETIAPINE FUMARATE
  5. RANITIDINE [Concomitant]
     Active Substance: RANITIDINE\RANITIDINE HYDROCHLORIDE
  6. KLONAPIN [Concomitant]
  7. IMIPRAMINE [Concomitant]
     Active Substance: IMIPRAMINE
  8. FENOFIBRATE. [Concomitant]
     Active Substance: FENOFIBRATE
  9. PROBIOTICS [Concomitant]
     Active Substance: PROBIOTICS NOS
  10. PROZAC [Suspect]
     Active Substance: FLUOXETINE HYDROCHLORIDE
     Indication: DEPRESSION
     Route: 048
  11. METOPROLOL TARTRATE. [Concomitant]
     Active Substance: METOPROLOL TARTRATE
  12. HTZ [Concomitant]
  13. OMEPROZOL [Concomitant]
  14. RESTASIS [Concomitant]
     Active Substance: CYCLOSPORINE
  15. SUDAFED [Concomitant]
     Active Substance: PSEUDOEPHEDRINE HYDROCHLORIDE
  16. LAMICTAL [Concomitant]
     Active Substance: LAMOTRIGINE
  17. TYLENOL [Concomitant]
     Active Substance: ACETAMINOPHEN

REACTIONS (1)
  - Tardive dyskinesia [None]
